FAERS Safety Report 6318375-5 (Version None)
Quarter: 2009Q3

REPORT INFORMATION
  Report Type: 
  Country: None (occurrence: None)
  Receive Date: 20090821
  Receipt Date: 20090811
  Transmission Date: 20100115
  Serious: Yes (Disabling)
  Sender: FDA-Public Use
  Company Number: JP-ABBOTT-09P-087-0590262-00

PATIENT
  Sex: Female
  Weight: 41 kg

DRUGS (16)
  1. HUMIRA [Suspect]
     Indication: RHEUMATOID ARTHRITIS
     Route: 058
     Dates: start: 20090427, end: 20090810
  2. ETHAMBUTOL HYDROCHLORIDE [Suspect]
     Indication: MYCOBACTERIUM AVIUM COMPLEX INFECTION
     Route: 048
  3. PREDNISOLONE [Concomitant]
     Indication: RHEUMATOID ARTHRITIS
     Route: 048
  4. ALFACALCIDOL [Concomitant]
     Indication: OSTEOPOROSIS
     Route: 048
  5. MOSAPRIDE CITRATE HYDRATE [Concomitant]
     Indication: GASTROINTESTINAL DISORDER
     Route: 048
  6. CLARITHROMYCIN [Concomitant]
     Indication: MYCOBACTERIUM AVIUM COMPLEX INFECTION
     Route: 048
  7. RIFAMPICIN [Concomitant]
     Indication: MYCOBACTERIUM AVIUM COMPLEX INFECTION
     Route: 048
  8. DICLOFENAC SODIUM [Concomitant]
     Indication: RHEUMATOID ARTHRITIS
     Route: 048
  9. MISOPROSTOL [Concomitant]
     Indication: GASTROINTESTINAL DISORDER
     Route: 048
  10. COUGHCODE-N [Concomitant]
     Indication: ANTITUSSIVE THERAPY
     Route: 048
  11. LEVOFLOXACIN HYDRATE [Concomitant]
     Indication: MYCOBACTERIUM AVIUM COMPLEX INFECTION
     Route: 048
  12. SULFAMETHOXAZOLE AND TRIMETHOPRIM [Concomitant]
     Indication: ANTIBIOTIC PROPHYLAXIS
     Route: 048
  13. ALENDRONATE SODIUM [Concomitant]
     Indication: OSTEOPOROSIS
  14. METHOTREXATE [Concomitant]
     Indication: RHEUMATOID ARTHRITIS
     Route: 048
  15. FOLIC ACID [Concomitant]
     Indication: PROPHYLAXIS
     Route: 048
  16. FOLIC ACID [Concomitant]
     Indication: ADVERSE DRUG REACTION

REACTIONS (1)
  - VISUAL ACUITY REDUCED [None]
